FAERS Safety Report 15637339 (Version 3)
Quarter: 2019Q3

REPORT INFORMATION
  Report Type: Spontaneous
  Country: US (occurrence: US)
  Receive Date: 20181120
  Receipt Date: 20190724
  Transmission Date: 20191004
  Serious: No
  Sender: FDA-Public Use
  Company Number: US-JNJFOC-20180510521

PATIENT
  Sex: Male
  Weight: 64 kg

DRUGS (9)
  1. VALTREX [Concomitant]
     Active Substance: VALACYCLOVIR HYDROCHLORIDE
  2. METOPROLOL. [Concomitant]
     Active Substance: METOPROLOL
  3. ASPIRIN. [Concomitant]
     Active Substance: ASPIRIN
  4. IMBRUVICA [Suspect]
     Active Substance: IBRUTINIB
     Indication: B-CELL SMALL LYMPHOCYTIC LYMPHOMA
     Route: 048
     Dates: start: 201612
  5. IMBRUVICA [Suspect]
     Active Substance: IBRUTINIB
     Route: 048
  6. LASIX [Concomitant]
     Active Substance: FUROSEMIDE
  7. LIPITOR [Concomitant]
     Active Substance: ATORVASTATIN CALCIUM
  8. FLOMAX [Concomitant]
     Active Substance: TAMSULOSIN HYDROCHLORIDE
  9. OMEPRAZOLE. [Concomitant]
     Active Substance: OMEPRAZOLE

REACTIONS (3)
  - Onychoclasis [Unknown]
  - Clostridium difficile infection [Unknown]
  - Onychomadesis [Unknown]
